FAERS Safety Report 24551116 (Version 2)
Quarter: 2024Q4

REPORT INFORMATION
  Report Type: Spontaneous
  Country: US (occurrence: US)
  Receive Date: 20241025
  Receipt Date: 20241031
  Transmission Date: 20250115
  Serious: No
  Sender: BAUSCH AND LOMB
  Company Number: US-BAUSCH-BL-2024-015766

PATIENT
  Age: 74 Year
  Sex: Male

DRUGS (1)
  1. UCERIS [Suspect]
     Active Substance: BUDESONIDE
     Indication: Colitis
     Dosage: USING IT FOR ABOUT 2 YEARS ON AND OFF, THE FREQUENCY OF USE WAS 4 WEEKS.
     Route: 054
     Dates: start: 2024

REACTIONS (5)
  - Muscle spasms [Unknown]
  - Extra dose administered [Unknown]
  - Product delivery mechanism issue [Unknown]
  - Product substitution issue [Unknown]
  - Device loosening [Unknown]

NARRATIVE: CASE EVENT DATE: 20241001
